FAERS Safety Report 8928617 (Version 2)
Quarter: 2014Q1

REPORT INFORMATION
  Report Type: Report from Study
  Country: US (occurrence: US)
  Receive Date: 20121127
  Receipt Date: 20140131
  Transmission Date: 20141002
  Serious: Yes (Other)
  Sender: FDA-Public Use
  Company Number: US-ROCHE-GNE311356

PATIENT
  Age: 62 Year
  Sex: Female
  Weight: 90.8 kg

DRUGS (18)
  1. OMALIZUMAB [Suspect]
     Indication: ASTHMA
     Dosage: 2 UNK, Q2W; DATE OF LAST DOSE PRIOR TO EVENT: 11/NOV/2012
     Route: 058
     Dates: start: 20100311
  2. OMALIZUMAB [Suspect]
     Route: 065
     Dates: start: 20101111
  3. OMALIZUMAB [Suspect]
     Route: 065
  4. BENADRYL (UNITED STATES) [Concomitant]
     Indication: PRODUCT USED FOR UNKNOWN INDICATION
  5. DOXEPIN [Concomitant]
     Indication: PRODUCT USED FOR UNKNOWN INDICATION
  6. IBUPROFEN [Concomitant]
     Indication: PAIN
  7. TRIAMCINOLON [Concomitant]
     Indication: DERMATITIS ATOPIC
     Dosage: 10 MG, BID
     Route: 065
  8. ZYRTEC [Concomitant]
     Indication: PRURITUS
     Dosage: UNK
     Route: 065
  9. RANITIDINE [Concomitant]
     Indication: URTICARIA CHRONIC
     Dosage: UNK
     Route: 048
  10. PROAIR (UNITED STATES) [Concomitant]
     Indication: ASTHMA
     Route: 065
     Dates: start: 20050227
  11. FLOVENT HFA [Concomitant]
     Indication: ASTHMA
     Route: 050
     Dates: start: 20100205
  12. FLOVENT HFA [Concomitant]
     Route: 065
     Dates: start: 2009
  13. PROVENTIL HFA [Concomitant]
     Indication: ASTHMA
     Route: 050
     Dates: start: 20050227
  14. ZYRTEC [Concomitant]
     Indication: RHINITIS ALLERGIC
     Route: 048
     Dates: start: 20081120
  15. IBUPROFEN [Concomitant]
     Indication: PAIN
     Route: 048
  16. ESTRADIOL [Concomitant]
     Indication: HORMONE REPLACEMENT THERAPY
     Route: 061
     Dates: start: 1994
  17. TRIAMCINOLONE [Concomitant]
     Indication: HYPERSENSITIVITY
     Route: 061
     Dates: start: 2009
  18. NASONEX [Concomitant]
     Indication: HYPERSENSITIVITY
     Dosage: 60 MCG/2 PUFF
     Route: 042
     Dates: start: 2009

REACTIONS (5)
  - Urticaria [Not Recovered/Not Resolved]
  - Dyspnoea [Unknown]
  - Rash [Unknown]
  - Pruritus [Unknown]
  - Throat tightness [Unknown]
